FAERS Safety Report 8266702-4 (Version None)
Quarter: 2012Q2

REPORT INFORMATION
  Report Type: 
  Country: None (occurrence: None)
  Receive Date: 20120409
  Receipt Date: 20120404
  Transmission Date: 20120825
  Serious: Yes (Death)
  Sender: FDA-Public Use
  Company Number: US-BRISTOL-MYERS SQUIBB COMPANY-16501868

PATIENT
  Age: 74 Year
  Sex: Male

DRUGS (2)
  1. ATIVAN [Concomitant]
     Indication: NERVOUSNESS
  2. YERVOY [Suspect]
     Indication: METASTATIC MALIGNANT MELANOMA
     Dosage: 1DF:1 INFUSION

REACTIONS (2)
  - DEATH [None]
  - PALPITATIONS [None]
